FAERS Safety Report 5207766-1 (Version None)
Quarter: 2006Q4

REPORT INFORMATION
  Report Type: 
  Country: None (occurrence: None)
  Receive Date: 20061030
  Receipt Date: 20060703
  Transmission Date: 20070319
  Serious: No
  Sender: FDA-Public Use
  Company Number: 254928

PATIENT
  Age: 48 Year
  Sex: Male
  Weight: 140.6 kg

DRUGS (2)
  1. LEVEMIR (INSULIN FOR INJECTION, .0024MOL/L [Suspect]
     Indication: INSULIN-REQUIRING TYPE II DIABETES MELLITUS
     Dosage: 140 IU, QD, SUBCUTANEOUS
     Route: 058
     Dates: start: 20060623
  2. HUMALOG [Concomitant]

REACTIONS (3)
  - ABDOMINAL PAIN [None]
  - DIARRHOEA [None]
  - FLATULENCE [None]
